FAERS Safety Report 10990845 (Version 2)
Quarter: 2015Q3

REPORT INFORMATION
  Report Type: Spontaneous
  Country: US (occurrence: None)
  Receive Date: 20150330
  Receipt Date: 20150630
  Transmission Date: 20151125
  Serious: Yes (Hospitalization)
  Sender: FDA-Public Use
  Company Number: US-2015-10633

PATIENT
  Age: 54 Year
  Sex: Male
  Weight: 93 kg

DRUGS (7)
  1. ABILIFY MAINTENA [Suspect]
     Active Substance: ARIPIPRAZOLE
     Indication: DEPRESSION
     Dosage: 400 MG MILLIGRAM (S), SINGLE, IM (DEPOT)
     Route: 030
     Dates: start: 201404, end: 201404
  2. AMBIEN [Concomitant]
     Active Substance: ZOLPIDEM TARTRATE
  3. ZOCOR [Concomitant]
     Active Substance: SIMVASTATIN
  4. ABILIFY [Suspect]
     Active Substance: ARIPIPRAZOLE
     Indication: DEPRESSION
     Dates: start: 201406, end: 201406
  5. ABILIFY [Suspect]
     Active Substance: ARIPIPRAZOLE
     Indication: ANXIETY
     Dates: start: 201406, end: 201406
  6. ABILIFY MAINTENA [Suspect]
     Active Substance: ARIPIPRAZOLE
     Indication: SUICIDAL IDEATION
     Dosage: 400 MG MILLIGRAM (S), SINGLE, IM (DEPOT)
     Route: 030
     Dates: start: 201404, end: 201404
  7. PAXIL (PIROXICAM) [Concomitant]

REACTIONS (9)
  - Muscle twitching [None]
  - Restlessness [None]
  - Insomnia [None]
  - Anxiety [None]
  - Off label use [None]
  - Heart rate increased [None]
  - Suicidal ideation [None]
  - Restless legs syndrome [None]
  - Tremor [None]

NARRATIVE: CASE EVENT DATE: 201404
